FAERS Safety Report 7474526-0 (Version None)
Quarter: 2011Q2

REPORT INFORMATION
  Report Type: 
  Country: None (occurrence: None)
  Receive Date: 20110512
  Receipt Date: 20110505
  Transmission Date: 20111010
  Serious: Yes (Hospitalization)
  Sender: FDA-Public Use
  Company Number: DE-BIOGENIDEC-2011BI008201

PATIENT
  Age: 38 Year
  Sex: Female

DRUGS (10)
  1. IBUPROFEN [Concomitant]
     Indication: INTERVERTEBRAL DISC PROTRUSION
     Dates: start: 20081212
  2. IBUPROFEN [Concomitant]
     Dates: start: 20110201
  3. IBUPROFEN [Concomitant]
     Dates: start: 20101201, end: 20101201
  4. IBUPROFEN [Concomitant]
     Dates: start: 20101201, end: 20101201
  5. IBUPROFEN [Concomitant]
     Dates: start: 20101201, end: 20101201
  6. IBUPROFEN [Concomitant]
     Indication: INFLUENZA LIKE ILLNESS
     Dates: start: 20081212
  7. IBUPROFEN [Concomitant]
     Dates: start: 20110201
  8. AVONEX [Suspect]
     Indication: MULTIPLE SCLEROSIS
     Route: 030
     Dates: start: 20081212
  9. IBUPROFEN [Concomitant]
     Indication: BACK PAIN
     Dates: start: 20081212
  10. IBUPROFEN [Concomitant]
     Dates: start: 20110201

REACTIONS (1)
  - INTERVERTEBRAL DISC PROTRUSION [None]
